FAERS Safety Report 24028955 (Version 1)
Quarter: 2024Q2

REPORT INFORMATION
  Report Type: Spontaneous
  Country: US (occurrence: US)
  Receive Date: 20240628
  Receipt Date: 20240628
  Transmission Date: 20240716
  Serious: Yes (Other)
  Sender: FDA-Public Use
  Company Number: US-MYLANLABS-2024M1059441

PATIENT
  Age: 5 Month
  Sex: Female

DRUGS (8)
  1. CISPLATIN [Suspect]
     Active Substance: CISPLATIN
     Indication: Brain neoplasm
     Dosage: 90 MILLIGRAM/SQ. METER; ON DAY 1 OF WEEKS 1, 4, 7, AND 10
     Route: 042
  2. DOXORUBICIN [Suspect]
     Active Substance: DOXORUBICIN
     Indication: Brain neoplasm
     Dosage: 30 MILLIGRAM/SQ. METER, QD; CONTINUOUS INFUSION OVER THE COURSE OF 48HOUR ON DAYS 2 AND 3 OF WEEKS 1
     Route: 065
  3. ETOPOSIDE [Suspect]
     Active Substance: ETOPOSIDE
     Indication: Brain neoplasm
     Dosage: 100 MILLIGRAM/SQ. METER; ON DAYS 1, 2, AND 3 OF WEEKS 4, 7 AND 10
     Route: 042
  4. VINCRISTINE [Suspect]
     Active Substance: VINCRISTINE
     Indication: Brain neoplasm
     Dosage: 2 MILLIGRAM/SQ. METER; ON DAY 1 OF WEEKS 1 TO 13 AND WEEK 16 OF THERAPY
     Route: 042
  5. CYCLOPHOSPHAMIDE [Suspect]
     Active Substance: CYCLOPHOSPHAMIDE
     Indication: Brain neoplasm
     Dosage: 300 MILLIGRAM/SQ. METER, QD; CONTINUOUS INFUSION OVER THE COURSE OF 72 HOUR ON DAYS 2, 3, AND 4 OF W
     Route: 042
  6. CYCLOPHOSPHAMIDE [Suspect]
     Active Substance: CYCLOPHOSPHAMIDE
     Dosage: 600 MILLIGRAM/SQ. METER; ON DAY 2 OF WEEKS 7 AND 10
     Route: 042
  7. ACTINOMYCIN D [Suspect]
     Active Substance: DACTINOMYCIN
     Indication: Brain neoplasm
     Dosage: 1.2 MILLIGRAM/SQ. METER; ON DAYS 1, 2, 3, 4, AND 5 OF WEEK 16
     Route: 042
  8. TOPOTECAN [Suspect]
     Active Substance: TOPOTECAN HYDROCHLORIDE
     Indication: Brain neoplasm
     Dosage: 0.2 MILLIGRAM/SQ. METER; ON DAY 1 OF WEEKS 1, 2, 4, 7,AND 13.
     Route: 037

REACTIONS (3)
  - Venoocclusive liver disease [Recovering/Resolving]
  - Ototoxicity [Unknown]
  - Off label use [Unknown]
